FAERS Safety Report 22540392 (Version 1)
Quarter: 2023Q2

REPORT INFORMATION
  Report Type: Spontaneous
  Country: DE (occurrence: DE)
  Receive Date: 20230609
  Receipt Date: 20230609
  Transmission Date: 20230721
  Serious: Yes (Other)
  Sender: FDA-Public Use
  Company Number: DE-JNJFOC-20230610315

PATIENT
  Age: 80 Year
  Sex: Male

DRUGS (1)
  1. ERLEADA [Suspect]
     Active Substance: APALUTAMIDE
     Indication: Product used for unknown indication
     Route: 048
     Dates: start: 20230526

REACTIONS (3)
  - Polyneuropathy [Unknown]
  - Gait disturbance [Unknown]
  - Underdose [Unknown]

NARRATIVE: CASE EVENT DATE: 20230526
